FAERS Safety Report 5894075-0 (Version None)
Quarter: 2008Q3

REPORT INFORMATION
  Report Type: 
  Country: None (occurrence: None)
  Receive Date: 20080923
  Receipt Date: 20071210
  Transmission Date: 20090109
  Serious: No
  Sender: FDA-Public Use
  Company Number: US-ASTRAZENECA-2007UW28232

PATIENT
  Age: 37 Year
  Sex: Female

DRUGS (7)
  1. SEROQUEL [Suspect]
     Indication: SLEEP DISORDER
     Dosage: 600 MG HS, 200 MG PRN
     Route: 048
  2. COMPAZINE [Interacting]
  3. TYLENOL NO.4 [Concomitant]
  4. VISTARIL [Concomitant]
  5. ZANAFLEX [Concomitant]
  6. LIBRIUM [Concomitant]
  7. RESTORIL [Concomitant]

REACTIONS (3)
  - DRUG INTERACTION [None]
  - DYSPHEMIA [None]
  - PHARMACEUTICAL PRODUCT COMPLAINT [None]
